FAERS Safety Report 9553235 (Version 1)
Quarter: 2013Q3

REPORT INFORMATION
  Report Type: Spontaneous
  Country: US (occurrence: None)
  Receive Date: 20130924
  Receipt Date: 20130924
  Transmission Date: 20140515
  Serious: No
  Sender: FDA-Public Use
  Company Number: None

PATIENT
  Age: 61 Year
  Sex: Male
  Weight: 91.63 kg

DRUGS (2)
  1. CYMBALTA [Suspect]
     Route: 048
     Dates: start: 20130711, end: 20130911
  2. TOPAMAX [Concomitant]
     Dosage: 100 MG, 25 MG.
     Dates: start: 20090909

REACTIONS (1)
  - Arthralgia [None]
